FAERS Safety Report 9266754 (Version 1)
Quarter: 2013Q2

REPORT INFORMATION
  Report Type: Report from Study
  Country: US (occurrence: US)
  Receive Date: 20130502
  Receipt Date: 20130502
  Transmission Date: 20140414
  Serious: Yes (Other)
  Sender: FDA-Public Use
  Company Number: US-ROCHE-1219208

PATIENT
  Age: 44 Year
  Sex: Male
  Weight: 82.45 kg

DRUGS (14)
  1. TRU-016 [Suspect]
     Indication: CHRONIC LYMPHOCYTIC LEUKAEMIA
     Route: 042
     Dates: start: 20130225, end: 20130225
  2. TRU-016 [Suspect]
     Route: 042
     Dates: start: 20130318, end: 20130318
  3. TRU-016 [Suspect]
     Route: 042
     Dates: start: 20130325, end: 20130325
  4. RITUXIMAB [Suspect]
     Indication: CHRONIC LYMPHOCYTIC LEUKAEMIA
     Route: 042
     Dates: start: 20130225, end: 20130225
  5. RITUXIMAB [Suspect]
     Route: 042
     Dates: start: 20130318, end: 20130318
  6. RITUXIMAB [Suspect]
     Route: 042
     Dates: start: 20130325, end: 20130325
  7. ATORVASTATIN [Concomitant]
  8. VALTREX [Concomitant]
     Route: 065
     Dates: start: 20130212
  9. IBUPROFEN [Concomitant]
  10. IMMUNOGLOBULIN [Concomitant]
     Route: 058
  11. TYLENOL [Concomitant]
  12. ALLOPURINOL [Concomitant]
     Route: 065
     Dates: start: 20130212, end: 20130325
  13. FAMOTIDINE [Concomitant]
     Route: 065
     Dates: start: 20130211, end: 20130212
  14. PREDNISONE [Concomitant]

REACTIONS (1)
  - Histiocytosis haematophagic [Recovering/Resolving]
